FAERS Safety Report 6057796-5 (Version None)
Quarter: 2009Q1

REPORT INFORMATION
  Report Type: 
  Country: None (occurrence: None)
  Receive Date: 20090129
  Receipt Date: 20090126
  Transmission Date: 20090719
  Serious: Yes (Other)
  Sender: FDA-Public Use
  Company Number: PHHY2009BR02783

PATIENT
  Age: 78 Year
  Sex: Female

DRUGS (3)
  1. RASILEZ [Suspect]
     Dosage: 150 MG, 1 DF/DAY
     Route: 048
  2. RASILEZ [Suspect]
     Dosage: 300 MG
     Route: 048
  3. SELOZOL [Concomitant]
     Dosage: 25 MG, 1 DF/DAY
     Route: 048

REACTIONS (3)
  - BLOOD PRESSURE INCREASED [None]
  - MUSCLE SPASMS [None]
  - PAIN IN EXTREMITY [None]
